FAERS Safety Report 17593361 (Version 1)
Quarter: 2020Q1

REPORT INFORMATION
  Report Type: Spontaneous
  Country: FR (occurrence: FR)
  Receive Date: 20200327
  Receipt Date: 20200327
  Transmission Date: 20200409
  Serious: Yes (Other)
  Sender: FDA-Public Use
  Company Number: FR-TEVA-2020-FR-1212137

PATIENT
  Age: 83 Year
  Sex: Female

DRUGS (3)
  1. RISEDRONATE MONOSODIQUE [Suspect]
     Active Substance: RISEDRONATE SODIUM
     Indication: OSTEOPOROSIS
     Dosage: 2 DOSAGE FORMS 1 MONTHS
     Route: 048
     Dates: start: 201908
  2. ZYMAD [Concomitant]
     Active Substance: CHOLECALCIFEROL
  3. CANDESARTAN CILEXETIL. [Concomitant]
     Active Substance: CANDESARTAN CILEXETIL

REACTIONS (4)
  - Abdominal distension [Unknown]
  - Diffuse alopecia [Unknown]
  - Decreased appetite [Unknown]
  - Cataract [Unknown]

NARRATIVE: CASE EVENT DATE: 2019
